FAERS Safety Report 7053672-X (Version None)
Quarter: 2010Q4

REPORT INFORMATION
  Report Type: 
  Country: None (occurrence: None)
  Receive Date: 20101020
  Receipt Date: 20101015
  Transmission Date: 20110411
  Serious: Yes (Death, Hospitalization)
  Sender: FDA-Public Use
  Company Number: JP-ELI_LILLY_AND_COMPANY-JP201010001652

PATIENT
  Sex: Female
  Weight: 56.5 kg

DRUGS (9)
  1. GEMCITABINE HCL [Suspect]
     Indication: PANCREATIC CARCINOMA
     Dosage: 1000 MG/M2, UNK
     Route: 042
     Dates: start: 20100825, end: 20100922
  2. TOCILIZUMAB [Suspect]
     Indication: PANCREATIC CARCINOMA
     Dosage: 8 MG/KG, UNK
     Dates: start: 20100825, end: 20100922
  3. TS 1 [Concomitant]
     Indication: PANCREATIC CARCINOMA
     Dosage: 2 D/F, 2/D
     Route: 048
     Dates: start: 20100929, end: 20101002
  4. MAGMITT [Concomitant]
     Indication: CONSTIPATION
     Dosage: 660 MG, 3/D
     Route: 048
  5. GASMOTIN [Concomitant]
     Indication: GASTROOESOPHAGEAL REFLUX DISEASE
     Dosage: 5 MG, 3/D
     Route: 048
  6. PARIET [Concomitant]
     Indication: GASTROOESOPHAGEAL REFLUX DISEASE
     Dosage: 10 MG, DAILY (1/D)
     Route: 048
  7. OXYCONTIN [Concomitant]
     Indication: CANCER PAIN
     Dosage: 2/D
     Route: 048
  8. LOXONIN [Concomitant]
     Indication: CANCER PAIN
     Dosage: 60 MG, 3/D
     Route: 048
  9. OXINORM [Concomitant]
     Indication: CANCER PAIN
     Dosage: UNK, AS NEEDED
     Route: 048

REACTIONS (1)
  - MULTI-ORGAN FAILURE [None]
